FAERS Safety Report 12110518 (Version 1)
Quarter: 2016Q1

REPORT INFORMATION
  Report Type: Spontaneous
  Country: BR (occurrence: BR)
  Receive Date: 20160224
  Receipt Date: 20160224
  Transmission Date: 20160526
  Serious: Yes (Death, Hospitalization)
  Sender: FDA-Public Use
  Company Number: BR-PFIZER INC-2016104046

PATIENT
  Age: 74 Year
  Sex: Male

DRUGS (1)
  1. SUTENT [Suspect]
     Active Substance: SUNITINIB MALATE
     Indication: METASTATIC RENAL CELL CARCINOMA
     Dosage: 50 MG, CYCLE 4 X 2
     Route: 048
     Dates: start: 20160108

REACTIONS (5)
  - Disease progression [Fatal]
  - Asthenia [Unknown]
  - Feeding disorder [Unknown]
  - Metastatic renal cell carcinoma [Fatal]
  - Pain [Unknown]

NARRATIVE: CASE EVENT DATE: 2016
